FAERS Safety Report 19598137 (Version 1)
Quarter: 2021Q3

REPORT INFORMATION
  Report Type: Spontaneous
  Country: IN (occurrence: IN)
  Receive Date: 20210723
  Receipt Date: 20210723
  Transmission Date: 20211014
  Serious: Yes (Other)
  Sender: FDA-Public Use
  Company Number: IN-SUN PHARMACEUTICAL INDUSTRIES LTD-2021R1-305084

PATIENT
  Age: 23 Year
  Sex: Female

DRUGS (10)
  1. SUCRALFATE. [Suspect]
     Active Substance: SUCRALFATE
     Indication: PYREXIA
     Route: 065
  2. CEFIXIME. [Suspect]
     Active Substance: CEFIXIME
     Indication: DYSPNOEA
  3. FOLIC ACID. [Suspect]
     Active Substance: FOLIC ACID
     Indication: PYREXIA
     Route: 065
  4. CALCIUM [Suspect]
     Active Substance: CALCIUM
     Indication: PYREXIA
     Route: 065
  5. CEFIXIME. [Suspect]
     Active Substance: CEFIXIME
     Indication: PYREXIA
     Route: 065
  6. HYDROXYUREA. [Suspect]
     Active Substance: HYDROXYUREA
     Indication: PYREXIA
     Route: 065
  7. FOLIC ACID. [Suspect]
     Active Substance: FOLIC ACID
     Indication: DYSPNOEA
  8. SUCRALFATE. [Suspect]
     Active Substance: SUCRALFATE
     Indication: DYSPNOEA
  9. HYDROXYUREA. [Suspect]
     Active Substance: HYDROXYUREA
     Indication: DYSPNOEA
  10. CALCIUM [Suspect]
     Active Substance: CALCIUM
     Indication: DYSPNOEA

REACTIONS (3)
  - Drug ineffective [Unknown]
  - Foetal death [Unknown]
  - Exposure during pregnancy [Unknown]
